FAERS Safety Report 8722475 (Version 2)
Quarter: 2012Q4

REPORT INFORMATION
  Report Type: 
  Country: US (occurrence: US)
  Receive Date: 20120814
  Receipt Date: 20121106
  Transmission Date: 20130627
  Serious: No
  Sender: FDA-Public Use
  Company Number: US-ASTRAZENECA-2012SE54521

PATIENT
  Age: 58 Year
  Sex: Male
  Weight: 80.7 kg

DRUGS (2)
  1. SYMBICORT [Suspect]
     Indication: ASTHMA
     Dosage: 320 MCG, BID
     Route: 055
     Dates: start: 2011
  2. PROAIR [Concomitant]
     Indication: ASTHMA

REACTIONS (5)
  - Lung disorder [Unknown]
  - Wheezing [Unknown]
  - Sinus congestion [Unknown]
  - Headache [Unknown]
  - Drug effect decreased [Unknown]
